FAERS Safety Report 6198253-5 (Version None)
Quarter: 2009Q2

REPORT INFORMATION
  Report Type: 
  Country: None (occurrence: None)
  Receive Date: 20090521
  Receipt Date: 20090514
  Transmission Date: 20091009
  Serious: Yes (Other)
  Sender: FDA-Public Use
  Company Number: US-ALLERGAN-0906771US

PATIENT
  Age: 63 Year
  Sex: Female

DRUGS (3)
  1. BOTOX [Suspect]
     Indication: DYSTONIA
     Dosage: 310 UNITS, SINGLE
     Route: 030
     Dates: start: 20081001, end: 20081001
  2. BOTOX [Suspect]
     Indication: MEIGE'S SYNDROME
     Dosage: 310 UNITS, SINGLE
     Route: 030
     Dates: start: 20090429, end: 20090429
  3. BOTOX [Suspect]
     Indication: BLEPHAROSPASM
     Dosage: UNK, SINGLE
     Route: 030
     Dates: start: 20010101, end: 20010101

REACTIONS (4)
  - ASTHENIA [None]
  - DYSARTHRIA [None]
  - HYPOAESTHESIA [None]
  - HYPOAESTHESIA FACIAL [None]
